FAERS Safety Report 13621670 (Version 1)
Quarter: 2017Q2

REPORT INFORMATION
  Report Type: Spontaneous
  Country: US (occurrence: US)
  Receive Date: 20170607
  Receipt Date: 20170607
  Transmission Date: 20170830
  Serious: No
  Sender: FDA-Public Use
  Company Number: US-ROCHE-1825507

PATIENT
  Sex: Female
  Weight: 74.84 kg

DRUGS (20)
  1. PREDNISONE. [Concomitant]
     Active Substance: PREDNISONE
     Indication: RHEUMATOID ARTHRITIS
     Route: 065
     Dates: start: 2015
  2. FOSINOPRIL [Concomitant]
     Active Substance: FOSINOPRIL
     Indication: HYPERTENSION
     Dosage: BEEN ON IT MANY YEARS.
     Route: 065
  3. CLINDAMYCIN. [Concomitant]
     Active Substance: CLINDAMYCIN
     Dosage: 2 CAPSULES, PRIOR TO DENTAL/SURGICAL PROCEDURE.
     Route: 065
  4. CLONAZEPAM. [Suspect]
     Active Substance: CLONAZEPAM
     Indication: ANXIETY
     Dosage: WEANING OFF RIGHT NOW. BEEN TAKING THIS SHE GUESS ABOUT 5 YEARS.
     Route: 065
  5. XELJANZ [Suspect]
     Active Substance: TOFACITINIB CITRATE
     Indication: RHEUMATOID ARTHRITIS
     Dosage: ONE IN THE MORNING AND ONE AT NIGHT.
     Route: 065
     Dates: start: 20160728, end: 20160826
  6. OMEPRAZOLE. [Concomitant]
     Active Substance: OMEPRAZOLE
     Dosage: TAKES THE PLACE OF NEXIUM. PROBABLY BEEN ON THIS ABOUT 6 MONTHS.
     Route: 065
  7. HYDROMORPHONE [Concomitant]
     Active Substance: HYDROMORPHONE
     Dosage: SHE TAKES MORNING TABLETS AROUND 8AM , TAKES THE MIDDAY AT 2 PM, NIGHT TIME TAKES BEFORE 9PM. HAS BE
     Route: 065
  8. NYSTATIN. [Concomitant]
     Active Substance: NYSTATIN
     Dosage: 1 APPLICATION 1 TO 2 TIMES A DAY HYSTERECTOMY SCAR ABDOMEN. BEEN ON THIS SINCE TAKING CLINDAMYCIN.
     Route: 065
     Dates: start: 201607
  9. SUMATRIPTAN. [Concomitant]
     Active Substance: SUMATRIPTAN
     Dosage: THE LAST TIME SHE HAS HAD SUMATRIPTAN WAS THIS SUMMER AND BEFORE STARTING XELJANZ. SHE GUESSED SHE H
     Route: 065
  10. CLOTRIMAZOLE. [Concomitant]
     Active Substance: CLOTRIMAZOLE
     Indication: DRY MOUTH
     Dosage: SHE DOES NOT TAKE 5, BUT TAKES 1 AS NEEDED. STARTED IN JUN/JUL 2015. SHE STILL TAKES IT EVEN NOW. LO
     Route: 065
  11. FOLIC ACID. [Concomitant]
     Active Substance: FOLIC ACID
     Dosage: BEEN TAKING SINCE 2.5 YEARS AGO . USE TO TAKE METRONIDAZOLE MEDICARE TOLD HER O QUIT TAKING THAT AND
     Route: 065
  12. DOXYCYCLINE. [Concomitant]
     Active Substance: DOXYCYCLINE
     Dosage: TO HELP , WHATEVER HER BLOOD WAS SHOWING FOR THE RHEUMATOID, HAS BEEN TAKING FOR 4 YEARS.
     Route: 065
  13. VITAMIN D2 [Concomitant]
     Active Substance: ERGOCALCIFEROL
     Dosage: ON TUESDAYS AND SATURDAYS. SHE ASSUMES DOCTOR WAS WORKING ON BONES AND JOINTS AND WHATEVER THE BLOOD
     Route: 065
  14. ATENOLOL. [Concomitant]
     Active Substance: ATENOLOL
     Indication: HYPERTENSION
     Dosage: ONCE AT BEDTIME
     Route: 065
  15. FUROSEMIDE. [Concomitant]
     Active Substance: FUROSEMIDE
     Indication: PERIPHERAL SWELLING
     Dosage: BEEN HAVING VENOUS DISEASE AND FOR SWELLING.
     Route: 065
  16. LEVOTHYROXINE. [Concomitant]
     Active Substance: LEVOTHYROXINE
     Dosage: BEEN ON THIS 2 YEARS. 1 TABLET MONDAY, WEDNESDAY, FRIDAY TAKES 2 TABLETS ON UESDAY,THURSDAY, SATURDA
     Route: 065
  17. ADDERALL [Concomitant]
     Active Substance: AMPHETAMINE ASPARTATE\AMPHETAMINE SULFATE\DEXTROAMPHETAMINE SACCHARATE\DEXTROAMPHETAMINE SULFATE
     Dosage: 2 CAPSULES DAILY. STOPPED TAKING 7 DAYS AGO. SHE GUESSED SHE HAS BEEN ON IT AT LEAST 4 YEARS.
     Route: 065
     Dates: end: 201608
  18. RANITIDINE. [Concomitant]
     Active Substance: RANITIDINE
     Dosage: ONCE AT NIGHT, STARTED THIS MAYBE A YEAR AGO.
     Route: 065
  19. PROMETHAZINE [Concomitant]
     Active Substance: PROMETHAZINE\PROMETHAZINE HYDROCHLORIDE
     Indication: NAUSEA
     Dosage: HAS BEEN ON THIS MORE THAN 5 YEARS. HER MIGRAINES MAKES HER NAUSEATED.
     Route: 065
  20. ONDANSETRON [Concomitant]
     Active Substance: ONDANSETRON
     Indication: NAUSEA
     Dosage: SHE RAN OUT AND HAD TO GET PROMETHAZINE FOR THE NAUSEA.
     Route: 065
     Dates: end: 201608

REACTIONS (5)
  - Headache [Recovered/Resolved]
  - Fungal infection [Unknown]
  - Drug effect variable [Unknown]
  - Arthralgia [Not Recovered/Not Resolved]
  - Oropharyngeal pain [Not Recovered/Not Resolved]
